FAERS Safety Report 10149704 (Version 5)
Quarter: 2014Q2

REPORT INFORMATION
  Report Type: Spontaneous
  Country: DE (occurrence: DE)
  Receive Date: 20140502
  Receipt Date: 20140610
  Transmission Date: 20141212
  Serious: Yes (Hospitalization, Other)
  Sender: FDA-Public Use
  Company Number: DE-JNJFOC-20140419024

PATIENT
  Age: 77 Year
  Sex: Male
  Weight: 95 kg

DRUGS (12)
  1. XARELTO [Suspect]
     Indication: EMBOLISM VENOUS
     Route: 048
     Dates: start: 20140328, end: 20140423
  2. XARELTO [Suspect]
     Indication: EMBOLISM VENOUS
     Route: 048
     Dates: start: 20140307, end: 20140327
  3. XARELTO [Suspect]
     Indication: DEEP VEIN THROMBOSIS
     Route: 048
     Dates: start: 20140328, end: 20140423
  4. XARELTO [Suspect]
     Indication: DEEP VEIN THROMBOSIS
     Route: 048
     Dates: start: 20140307, end: 20140327
  5. MONO-EMBOLEX [Suspect]
     Indication: DEEP VEIN THROMBOSIS
     Route: 065
  6. ASS [Concomitant]
     Route: 065
  7. PANTOZOL [Concomitant]
     Route: 065
  8. METOPROLOL [Concomitant]
     Route: 065
  9. SIMVASTATIN [Concomitant]
     Route: 065
  10. AMLODIPINE [Concomitant]
     Route: 065
  11. RAMIPRIL [Concomitant]
     Route: 065
  12. MOVICOL [Concomitant]
     Route: 065

REACTIONS (3)
  - Thrombosis [Unknown]
  - Venous thrombosis [Not Recovered/Not Resolved]
  - Renal failure [Unknown]
